FAERS Safety Report 19079839 (Version 84)
Quarter: 2023Q1

REPORT INFORMATION
  Report Type: Spontaneous
  Country: DE (occurrence: DE)
  Receive Date: 20210401
  Receipt Date: 20230104
  Transmission Date: 20230418
  Serious: Yes (Death, Hospitalization, Disabling, Other)
  Sender: FDA-Public Use
  Company Number: DE-ROCHE-2784989

PATIENT
  Age: 80 Year
  Sex: Male
  Weight: 69 kg

DRUGS (24)
  1. ASCORBIC ACID\PEG-3350\POTASSIUM CHLORIDE\SODIUM (ASCORBATE/CHLORIDE/S [Suspect]
     Active Substance: ASCORBIC ACID\POLYETHYLENE GLYCOL 3350\POTASSIUM CHLORIDE\SODIUM ASCORBATE\SODIUM CHLORIDE\SODIUM SU
     Indication: Constipation
     Dosage: 2. ORAL 17 MG QD 3. ORAL 4. 17 (UNK) ORAL 5. 17 MG ORAL 6. QD, ORAL 7. 3 MG, 1/WEEK; ORAL
     Route: 048
  2. ASCORBIC ACID\PEG-3350\POTASSIUM CHLORIDE\SODIUM (ASCORBATE/CHLORIDE/S [Suspect]
     Active Substance: ASCORBIC ACID\POLYETHYLENE GLYCOL 3350\POTASSIUM CHLORIDE\SODIUM ASCORBATE\SODIUM CHLORIDE\SODIUM SU
     Indication: Off label use
     Route: 042
  3. ALBUTEROL SULFATE [Suspect]
     Active Substance: ALBUTEROL SULFATE
     Indication: Chronic obstructive pulmonary disease
     Dosage: 2. UNK, Q6HR; RESPI, 3. 1 DF QD; RESPIRATORY, 4. Q6HR; RESPIRATORY, 5. Q6HR; OTHER, 6.1 DF; RESPI
     Route: 055
  4. ALBUTEROL SULFATE [Suspect]
     Active Substance: ALBUTEROL SULFATE
     Indication: Off label use
     Dosage: 7. 4 DF, QD; UNKNOWN, 8. UNKNOWN, 9. 1 DF; RESPIRATORY, 10. 4 DF, Q6HR, 11. QD, 12. 4MG, QD
     Route: 065
  5. ALBUTEROL SULFATE [Suspect]
     Active Substance: ALBUTEROL SULFATE
     Indication: Intentional product misuse
  6. IPRATROPIUM [Suspect]
     Active Substance: IPRATROPIUM
     Indication: Dyspnoea
     Dosage: 2. RESPIRATORY (INHALATION) 1 IN 1D 1DF 3. RESPIRATORY (INHALATION) 1 IN 6 HR.
     Route: 055
  7. IPRATROPIUM [Suspect]
     Active Substance: IPRATROPIUM
     Indication: Sleep disorder therapy
     Dosage: 4. 1 UNK INHA 5. OTHER, 6. ENDOSINUSIAL
     Route: 065
  8. IPRATROPIUM BROMIDE [Suspect]
     Active Substance: IPRATROPIUM BROMIDE
     Indication: Dyspnoea
     Dosage: 1.QID,OTHER; 2.QID; 3. 4 UNK,QD,RESPIRATORY; 5.QD,RESPIRATORY; 6.1DF,Q6HR,RESPIRATORY; 7.QD;
     Route: 050
  9. IPRATROPIUM BROMIDE [Suspect]
     Active Substance: IPRATROPIUM BROMIDE
     Indication: Sleep disorder therapy
     Dosage: 8.1DF, Q8HR,OTHER9.1 DF,QD.
     Route: 050
  10. IPRATROPIUM BROMIDE [Suspect]
     Active Substance: IPRATROPIUM BROMIDE
     Indication: Intentional product misuse
     Dosage: QD
     Route: 065
  11. IPRATROPIUM BROMIDE [Suspect]
     Active Substance: IPRATROPIUM BROMIDE
     Indication: Off label use
     Route: 055
  12. ALBUTEROL [Suspect]
     Active Substance: ALBUTEROL
     Indication: Chronic obstructive pulmonary disease
     Dosage: 1. RESPIRATORY 1 DF QD, 2. RESPIRATORY 1 DF IN 6 HOURS, 3. ENDOSINUSIAL
     Route: 055
  13. ALBUTEROL [Suspect]
     Active Substance: ALBUTEROL
     Indication: Off label use
  14. ALBUTEROL [Suspect]
     Active Substance: ALBUTEROL
     Indication: Intentional product misuse
  15. PHYTONADIONE [Suspect]
     Active Substance: PHYTONADIONE
     Indication: Vitamin supplementation
     Dosage: 1. 5 MG AS NEEDED 2. 5MG AS NEEDED 3. ORAL 650 MG QD; 4. 5MG, QD
     Route: 017
  16. PHYTONADIONE [Suspect]
     Active Substance: PHYTONADIONE
     Indication: Off label use
     Dosage: PRN
     Route: 017
  17. PHYTONADIONE [Suspect]
     Active Substance: PHYTONADIONE
     Indication: Analgesic therapy
  18. BUDESONIDE [Suspect]
     Active Substance: BUDESONIDE
     Indication: Product used for unknown indication
     Route: 065
  19. EFINACONAZOLE [Suspect]
     Active Substance: EFINACONAZOLE
     Indication: Product used for unknown indication
     Route: 061
  20. NITROGLYCERIN [Suspect]
     Active Substance: NITROGLYCERIN
     Indication: Product used for unknown indication
     Route: 065
  21. BETAMETHASONE [Suspect]
     Active Substance: BETAMETHASONE
     Indication: Swelling
     Dosage: UNK, PRN, 2. 10 MG TOPICAL (PRN)
     Route: 065
  22. BETAMETHASONE [Suspect]
     Active Substance: BETAMETHASONE
     Indication: Off label use
  23. HYDROCORTISONE ACETATE [Suspect]
     Active Substance: HYDROCORTISONE ACETATE
     Indication: Product used for unknown indication
     Route: 065
  24. VITAMIN K1 [Suspect]
     Active Substance: PHYTONADIONE
     Indication: Product used for unknown indication
     Route: 065

REACTIONS (83)
  - Death [Fatal]
  - Appendicolith [Fatal]
  - Sepsis [Fatal]
  - Multiple organ dysfunction syndrome [Fatal]
  - General physical health deterioration [Fatal]
  - Ascites [Fatal]
  - Appendicitis [Fatal]
  - Stress [Fatal]
  - Cardiogenic shock [Fatal]
  - Ventricular fibrillation [Fatal]
  - Hyponatraemia [Fatal]
  - Nausea [Fatal]
  - Condition aggravated [Fatal]
  - Constipation [Fatal]
  - Vomiting [Fatal]
  - Abdominal pain [Fatal]
  - Abdominal distension [Fatal]
  - Blood phosphorus increased [Fatal]
  - Somnolence [Fatal]
  - Dry mouth [Fatal]
  - Anaemia [Fatal]
  - Aspiration [Fatal]
  - Asthenia [Fatal]
  - Asthma [Fatal]
  - Blood creatinine increased [Fatal]
  - Blood test abnormal [Fatal]
  - Bronchiectasis [Fatal]
  - Bronchopulmonary aspergillosis allergic [Fatal]
  - Cough [Fatal]
  - Fatigue [Fatal]
  - Gastrooesophageal reflux disease [Fatal]
  - Haemoptysis [Fatal]
  - Hypoxia [Fatal]
  - Lower respiratory tract infection [Fatal]
  - Lung opacity [Fatal]
  - Musculoskeletal stiffness [Fatal]
  - Obstructive airways disorder [Fatal]
  - Pain [Fatal]
  - Pleural effusion [Fatal]
  - Pneumonia [Fatal]
  - Pulmonary fibrosis [Fatal]
  - Rales [Fatal]
  - Sputum discoloured [Fatal]
  - Total lung capacity decreased [Fatal]
  - Upper respiratory tract infection [Fatal]
  - Blood calcium increased [Fatal]
  - Liver function test increased [Fatal]
  - Pyrexia [Fatal]
  - Transaminases increased [Fatal]
  - Abdominal pain upper [Fatal]
  - Drug hypersensitivity [Fatal]
  - Dyspnoea [Fatal]
  - Headache [Fatal]
  - Myasthenia gravis [Fatal]
  - Blood cholesterol increased [Fatal]
  - Blood uric acid increased [Fatal]
  - Pulmonary mass [Fatal]
  - Wheezing [Fatal]
  - Drug therapy [Fatal]
  - Diabetes mellitus [Fatal]
  - Thrombosis [Fatal]
  - Sleep disorder therapy [Fatal]
  - Sleep disorder [Fatal]
  - Analgesic therapy [Fatal]
  - Neuralgia [Fatal]
  - Bacterial infection [Fatal]
  - Swelling [Fatal]
  - Drug hypersensitivity [Fatal]
  - Pulmonary embolism [Fatal]
  - Iron deficiency [Fatal]
  - Chronic obstructive pulmonary disease [Fatal]
  - Hypophosphataemia [Fatal]
  - Drug intolerance [Fatal]
  - Hyperphosphataemia [Fatal]
  - Tremor [Fatal]
  - Oedema peripheral [Fatal]
  - Off label use [Fatal]
  - Incorrect route of product administration [Fatal]
  - Product dose omission issue [Fatal]
  - Drug ineffective [Fatal]
  - Off label use [Fatal]
  - Intentional product misuse [Fatal]
  - Product use in unapproved indication [Fatal]

NARRATIVE: CASE EVENT DATE: 20200601
